FAERS Safety Report 19804600 (Version 2)
Quarter: 2022Q1

REPORT INFORMATION
  Report Type: Report from Study
  Country: US (occurrence: US)
  Receive Date: 20210908
  Receipt Date: 20220211
  Transmission Date: 20220423
  Serious: Yes (Congenital Anomaly, Other)
  Sender: FDA-Public Use
  Company Number: US-GILEAD-2021-0547307

PATIENT
  Sex: Male
  Weight: 2.94 kg

DRUGS (2)
  1. EMTRICITABINE\TENOFOVIR DISOPROXIL FUMARATE [Suspect]
     Active Substance: EMTRICITABINE\TENOFOVIR DISOPROXIL FUMARATE
     Indication: HIV infection
     Dosage: 500 MG, QD
     Route: 064
     Dates: start: 20201217
  2. TIVICAY [Suspect]
     Active Substance: DOLUTEGRAVIR SODIUM
     Indication: HIV infection
     Dosage: 50 MG, QD
     Route: 064
     Dates: start: 20201217

REACTIONS (4)
  - Cardiac murmur [Unknown]
  - Atrial septal defect [Unknown]
  - Ankyloglossia congenital [Unknown]
  - Foetal exposure during pregnancy [Recovered/Resolved]
